FAERS Safety Report 11329624 (Version 1)
Quarter: 2015Q3

REPORT INFORMATION
  Report Type: Spontaneous
  Country: US (occurrence: None)
  Receive Date: 20150730
  Receipt Date: 20150730
  Transmission Date: 20151125
  Serious: Yes (Hospitalization)
  Sender: FDA-Public Use
  Company Number: 2015AP010789

PATIENT
  Age: 33 Year
  Sex: Female
  Weight: 42 kg

DRUGS (2)
  1. FERRIPROX [Suspect]
     Active Substance: DEFERIPRONE
     Indication: THALASSAEMIA
     Route: 048
     Dates: start: 20120116
  2. FERRIPROX [Suspect]
     Active Substance: DEFERIPRONE
     Indication: IRON OVERLOAD
     Route: 048
     Dates: start: 20120116

REACTIONS (4)
  - Ankle fracture [None]
  - Hospitalisation [None]
  - Pyrexia [None]
  - Medical device change [None]

NARRATIVE: CASE EVENT DATE: 20150701
